FAERS Safety Report 4754913-1 (Version None)
Quarter: 2005Q3

REPORT INFORMATION
  Report Type: 
  Country: None (occurrence: None)
  Receive Date: 20050825
  Receipt Date: 20050816
  Transmission Date: 20060218
  Serious: Yes (Hospitalization, Other)
  Sender: FDA-Public Use
  Company Number: 2005-08-0248

PATIENT
  Age: 63 Year
  Sex: Female
  Weight: 82 kg

DRUGS (6)
  1. INTRONA (INTERFERON ALFA-2B RECOMBINANT) INJECTABLE     (LIKE INTERON [Suspect]
     Indication: MALIGNANT MELANOMA
     Dosage: 3 MIU 3XWK SUBCUTANEOUS
     Route: 058
     Dates: start: 20040825, end: 20050221
  2. INTRONA (INTERFERON ALFA-2B RECOMBINANT) INJECTABLE     (LIKE INTERON [Suspect]
     Indication: MALIGNANT MELANOMA
     Dosage: 3 MIU 3XWK SUBCUTANEOUS
     Route: 058
     Dates: start: 20040825
  3. INTRONA (INTERFERON ALFA-2B RECOMBINANT) INJECTABLE     (LIKE INTERON [Suspect]
     Indication: MALIGNANT MELANOMA
     Dosage: 3 MIU 3XWK SUBCUTANEOUS
     Route: 058
     Dates: start: 20050413
  4. ACETAMINOPHEN [Concomitant]
  5. NEXIUM [Concomitant]
  6. LOPIRIN COR TABLETS [Concomitant]

REACTIONS (4)
  - HYPOTHYROIDISM [None]
  - INTRACRANIAL ANEURYSM [None]
  - LOSS OF CONSCIOUSNESS [None]
  - SUBARACHNOID HAEMORRHAGE [None]
